FAERS Safety Report 8169967-2 (Version None)
Quarter: 2012Q1

REPORT INFORMATION
  Report Type: 
  Country: None (occurrence: None)
  Receive Date: 20120228
  Receipt Date: 20120228
  Transmission Date: 20120608
  Serious: Yes (Death, Life-Threatening, Hospitalization)
  Sender: FDA-Public Use
  Company Number: None

PATIENT
  Age: 33 Year
  Sex: Female
  Weight: 79.378 kg

DRUGS (2)
  1. HYDRALAZINE HCL [Concomitant]
     Indication: HYPERTENSION
     Dosage: HYDRALAZINE 50 MG
     Route: 048
  2. METHYLDOPA [Suspect]
     Indication: HYPERTENSION
     Dosage: METHYLDOPA 500 MG
     Route: 048

REACTIONS (3)
  - MATERNAL EXPOSURE DURING PREGNANCY [None]
  - MENTAL STATUS CHANGES [None]
  - NUCLEAR MAGNETIC RESONANCE IMAGING BRAIN ABNORMAL [None]
